FAERS Safety Report 22695583 (Version 2)
Quarter: 2024Q2

REPORT INFORMATION
  Report Type: Spontaneous
  Country: PT (occurrence: PT)
  Receive Date: 20230712
  Receipt Date: 20240426
  Transmission Date: 20240716
  Serious: Yes (Hospitalization, Other)
  Sender: FDA-Public Use
  Company Number: PT-EMA-DD-20230622-225467-095328

PATIENT
  Age: 78 Year
  Sex: Female

DRUGS (9)
  1. MEROPENEM [Suspect]
     Active Substance: MEROPENEM
     Indication: Antibiotic therapy
     Dosage: 2 GRAM PER BAG OF BONE CEMENT
     Route: 065
  2. VANCOMYCIN [Suspect]
     Active Substance: VANCOMYCIN
     Indication: Antibiotic therapy
     Dosage: 4 GRAM
     Route: 042
  3. DABIGATRAN [Suspect]
     Active Substance: DABIGATRAN
     Indication: Anticoagulant therapy
     Dosage: UNK
     Route: 048
  4. DABIGATRAN [Suspect]
     Active Substance: DABIGATRAN
     Dosage: DISCONTINUED AND RE-STARTED AGAIN; LASTLY DISCONTINUED BEFORE....
     Route: 048
  5. ENOXAPARIN SODIUM [Suspect]
     Active Substance: ENOXAPARIN SODIUM
     Indication: Anticoagulant therapy
     Dosage: 120 MILLIGRAM, ONCE A DAY(60 MG, BID)
     Route: 065
  6. ENOXAPARIN SODIUM [Suspect]
     Active Substance: ENOXAPARIN SODIUM
     Dosage: INITIALLY DISCONTINUED AND RESTARTED AND THEN DISCONTINUED AGAIN
     Route: 065
  7. AMLODIPINE [Concomitant]
     Active Substance: AMLODIPINE BESYLATE
     Indication: Hypertension
     Dosage: UNK
     Route: 065
  8. HYDROCHLOROTHIAZIDE\OLMESARTAN MEDOXOMIL [Concomitant]
     Active Substance: HYDROCHLOROTHIAZIDE\OLMESARTAN MEDOXOMIL
     Indication: Hypertension
     Dosage: UNK
     Route: 065
  9. PIPERACILLIN AND TAZOBACTAM [Concomitant]
     Active Substance: PIPERACILLIN SODIUM\TAZOBACTAM SODIUM
     Indication: Antibiotic therapy
     Dosage: UNK
     Route: 042

REACTIONS (4)
  - Skin necrosis [Recovered/Resolved]
  - Enterococcal infection [Recovered/Resolved]
  - Device related infection [Recovered/Resolved]
  - Staphylococcal infection [Recovered/Resolved]
